FAERS Safety Report 6078641-8 (Version None)
Quarter: 2009Q1

REPORT INFORMATION
  Report Type: 
  Country: None (occurrence: None)
  Receive Date: 20090215
  Receipt Date: 20090202
  Transmission Date: 20090719
  Serious: Yes (Hospitalization, Other)
  Sender: FDA-Public Use
  Company Number: US-PFIZER INC-2009165211

PATIENT
  Age: 79 Year
  Sex: Male

DRUGS (6)
  1. SERTRALINE HCL [Suspect]
     Indication: MAJOR DEPRESSION
     Dosage: 100 MG, UNK
  2. SERTRALINE HCL [Suspect]
     Indication: POST-TRAUMATIC STRESS DISORDER
  3. ALLOPURINOL [Concomitant]
  4. FELODIPINE [Concomitant]
  5. LOVASTATIN [Concomitant]
  6. OMEPRAZOLE [Concomitant]

REACTIONS (7)
  - AGGRESSION [None]
  - AMNESIA [None]
  - CONFUSIONAL STATE [None]
  - DRUG ADMINISTRATION ERROR [None]
  - PARASOMNIA [None]
  - SLEEP INERTIA [None]
  - TREMOR [None]
